FAERS Safety Report 13896292 (Version 1)
Quarter: 2017Q3

REPORT INFORMATION
  Report Type: Report from Study
  Country: None (occurrence: US)
  Receive Date: 20170823
  Receipt Date: 20170823
  Transmission Date: 20171127
  Serious: No
  Sender: FDA-Public Use
  Company Number: US-SWEDISH ORPHAN INTERNATIONAL AB-2016US0915

PATIENT
  Sex: Female

DRUGS (1)
  1. KINERET [Suspect]
     Active Substance: ANAKINRA
     Indication: SCHNITZLER^S SYNDROME
     Route: 058
     Dates: start: 20161021

REACTIONS (2)
  - Fatigue [Recovered/Resolved]
  - Urticaria [Not Recovered/Not Resolved]

NARRATIVE: CASE EVENT DATE: 201610
